FAERS Safety Report 14623067 (Version 8)
Quarter: 2018Q2

REPORT INFORMATION
  Report Type: Report from Study
  Country: CO (occurrence: CO)
  Receive Date: 20180311
  Receipt Date: 20180518
  Transmission Date: 20180711
  Serious: Yes (Death, Hospitalization)
  Sender: FDA-Public Use
  Company Number: PHHY2018CO034319

PATIENT
  Sex: Female
  Weight: 46 kg

DRUGS (4)
  1. CORYOL [Suspect]
     Active Substance: CARVEDILOL
     Indication: CARDIAC DISORDER
     Route: 048
  2. FUROSEMIDE. [Concomitant]
     Active Substance: FUROSEMIDE
     Indication: PRODUCT USED FOR UNKNOWN INDICATION
     Route: 048
  3. ESOMEPRAZOLE [Suspect]
     Active Substance: ESOMEPRAZOLE
     Indication: PRODUCT USED FOR UNKNOWN INDICATION
     Route: 048
  4. ENTRESTO [Suspect]
     Active Substance: SACUBITRIL\VALSARTAN
     Indication: CARDIAC FAILURE
     Dosage: 50 MG  (SACUBITRIL 24 MG/ VALSARTAN 26 MG), Q12H
     Route: 048
     Dates: start: 20180129

REACTIONS (7)
  - Pleural effusion [Unknown]
  - Death [Fatal]
  - Depressed mood [Recovered/Resolved]
  - Respiratory distress [Recovered/Resolved]
  - Pleural effusion [Recovered/Resolved]
  - Back pain [Recovered/Resolved]
  - Psychiatric symptom [Recovered/Resolved]
